FAERS Safety Report 4297972-5 (Version None)
Quarter: 2004Q1

REPORT INFORMATION
  Report Type: 
  Country: None (occurrence: None)
  Receive Date: 20040218
  Receipt Date: 20001222
  Transmission Date: 20041129
  Serious: Yes (Other)
  Sender: FDA-Public Use
  Company Number: US-BRISTOL-MYERS SQUIBB COMPANY-10660363

PATIENT
  Sex: Female

DRUGS (11)
  1. STADOL [Suspect]
     Indication: MIGRAINE
     Route: 045
     Dates: start: 19960101, end: 19990101
  2. AMITRIPTYLINE [Concomitant]
  3. DEPAKOTE [Concomitant]
  4. HYDROCODONE + ACETAMINOPHEN [Concomitant]
  5. PROMETHAZINE [Concomitant]
  6. NEURONTIN [Concomitant]
  7. PROPOXYPHENE NAPSYLATE [Concomitant]
  8. COMPAZINE [Concomitant]
  9. OXYCODONE HCL + ACETAMINOPHEN [Concomitant]
  10. NARDIL [Concomitant]
  11. BELLASPAS [Concomitant]

REACTIONS (1)
  - DEPENDENCE [None]
